FAERS Safety Report 26040342 (Version 1)
Quarter: 2025Q4

REPORT INFORMATION
  Report Type: Spontaneous
  Country: EU (occurrence: EU)
  Receive Date: 20251113
  Receipt Date: 20251113
  Transmission Date: 20260117
  Serious: Yes (Hospitalization, Other)
  Sender: AUROBINDO
  Company Number: EU-ROCHE-10000273445

PATIENT
  Age: 61 Year
  Sex: Female
  Weight: 55.9 kg

DRUGS (18)
  1. CAPECITABINE [Suspect]
     Active Substance: CAPECITABINE
     Indication: Triple negative breast cancer
     Dosage: 2000 MILLIGRAM (LAST DOSE RECEIVED 2000 MG)
     Route: 048
     Dates: start: 20250318
  2. CARBOPLATIN [Suspect]
     Active Substance: CARBOPLATIN
     Indication: Triple negative breast cancer
     Dosage: ON 08-OCT-2024, SHE RECEIVED HER MOST RECENT DOSE OF CARBOPLATINE 450 MG PRIOR TO AE.
     Route: 042
     Dates: start: 20240729
  3. CARBOPLATIN [Suspect]
     Active Substance: CARBOPLATIN
     Dosage: 450 MILLIGRAM
     Route: 042
     Dates: start: 20241008
  4. DOXORUBICIN [Suspect]
     Active Substance: DOXORUBICIN
     Indication: Triple negative breast cancer
     Dosage: ON 08-JAN-2025, SHE RECEIVED HER MOST RECENT DOSE OF DOXORUBICIN 60 MG/M2 PRIOR TO AE.
     Route: 042
     Dates: start: 20241107
  5. DOXORUBICIN [Suspect]
     Active Substance: DOXORUBICIN
     Dosage: 60 MILLIGRAM/SQ. METER
     Route: 042
     Dates: start: 20250108
  6. ATEZOLIZUMAB [Suspect]
     Active Substance: ATEZOLIZUMAB
     Indication: Triple negative breast cancer
     Dosage: ON 23-APR-2025, SHE RECEIVED HER MOST RECENT DOSE OF ATEZOLIZUMAB 1200 MG PRIOR TO AE.CYCLE 3 DAY 1
     Route: 042
     Dates: start: 20240729
  7. ATEZOLIZUMAB [Suspect]
     Active Substance: ATEZOLIZUMAB
     Dosage: 1200 MILLIGRAM, CYCLICAL (CYCLE 3 DAY 1)
     Route: 042
     Dates: start: 20250423
  8. TIRAGOLUMAB [Suspect]
     Active Substance: TIRAGOLUMAB
     Indication: Triple negative breast cancer
     Dosage: ON 23-APR-2025, SHE RECEIVED HER MOST RECENT DOSE OF TIRAGOLIMAB 600 MG  PRIOR TO AE.
     Route: 042
     Dates: start: 20240729
  9. TIRAGOLUMAB [Suspect]
     Active Substance: TIRAGOLUMAB
     Dosage: 600 MILLIGRAM
     Route: 042
     Dates: start: 20250423
  10. PACLITAXEL [Suspect]
     Active Substance: PACLITAXEL
     Indication: Triple negative breast cancer
     Dosage: ON 23-OCT-2024, SHE RECEIVED HER MOST RECENT DOSE OF NAB PACLITAXEL 170 MG PRIOR TO AE.
     Route: 042
     Dates: start: 20240729
  11. PACLITAXEL [Suspect]
     Active Substance: PACLITAXEL
     Dosage: 170 MILLIGRAM
     Route: 042
     Dates: start: 20241023
  12. CYCLOPHOSPHAMIDE [Suspect]
     Active Substance: CYCLOPHOSPHAMIDE
     Indication: Triple negative breast cancer
     Dosage: ON 08-JAN-2025, SHE RECEIVED HER MOST RECENT DODSE OF CYCLOPHOSPHAMIDE 600 MG/M2 PRIOR TO AE.CYCLE 8
     Route: 042
     Dates: start: 20241107
  13. CYCLOPHOSPHAMIDE [Suspect]
     Active Substance: CYCLOPHOSPHAMIDE
     Dosage: 600 MILLIGRAM/SQ. METER
     Route: 042
     Dates: start: 20250108
  14. LEVOTHYROXINE [Concomitant]
     Active Substance: LEVOTHYROXINE
     Indication: Thyroidectomy
     Dosage: 75 MICROGRAM
     Route: 048
     Dates: end: 20241204
  15. LEVOTHYROXINE [Concomitant]
     Active Substance: LEVOTHYROXINE
     Dosage: 100 MICROGRAM
     Route: 048
     Dates: start: 20241204
  16. ATORVASTATIN [Concomitant]
     Active Substance: ATORVASTATIN
     Indication: Product used for unknown indication
     Dosage: 20 MILLIGRAM
     Route: 048
     Dates: start: 202311
  17. ZOLPIDEM [Concomitant]
     Active Substance: ZOLPIDEM TARTRATE
     Indication: Product used for unknown indication
     Dosage: 10 MILLIGRAM
     Route: 048
     Dates: start: 202406
  18. Sorbiline [Concomitant]
     Indication: Product used for unknown indication
     Dosage: UNK
     Route: 065
     Dates: start: 202401

REACTIONS (2)
  - Colitis [Recovered/Resolved]
  - Diarrhoea [Not Recovered/Not Resolved]

NARRATIVE: CASE EVENT DATE: 20250425
